FAERS Safety Report 8345720-1 (Version None)
Quarter: 2012Q2

REPORT INFORMATION
  Report Type: 
  Country: None (occurrence: None)
  Receive Date: 20120508
  Receipt Date: 20120425
  Transmission Date: 20120825
  Serious: Yes (Death)
  Sender: FDA-Public Use
  Company Number: US-ELI_LILLY_AND_COMPANY-US201203005627

PATIENT
  Sex: Female

DRUGS (2)
  1. FORTEO [Suspect]
     Dosage: 20 UG, QD
     Route: 065
  2. FORTEO [Suspect]
     Indication: OSTEOPOROSIS
     Dosage: 20 UG, QD
     Route: 065

REACTIONS (10)
  - DRY MOUTH [None]
  - ARTHRALGIA [None]
  - THIRST [None]
  - MYALGIA [None]
  - PAIN [None]
  - DEATH [None]
  - SENSORY DISTURBANCE [None]
  - BURNING SENSATION [None]
  - ERYTHEMA [None]
  - ADVERSE EVENT [None]
